FAERS Safety Report 7147441 (Version 5)
Quarter: 2014Q4

REPORT INFORMATION
  Report Type: Report from Study
  Country: JP (occurrence: JP)
  Receive Date: 20091013
  Receipt Date: 20141103
  Transmission Date: 20150529
  Serious: Yes (Death, Other)
  Sender: FDA-Public Use
  Company Number: PHHY2009JP43524

PATIENT
  Age: 56 Year
  Sex: Male
  Weight: 57 kg

DRUGS (6)
  1. NEORAL [Suspect]
     Active Substance: CYCLOSPORINE
     Indication: APLASTIC ANAEMIA
     Dosage: 50 MG, QD
     Route: 048
     Dates: start: 20080709
  2. DIFLUCAN [Concomitant]
     Active Substance: FLUCONAZOLE
     Indication: PRODUCT USED FOR UNKNOWN INDICATION
     Dosage: 100 MG, UNK
     Route: 048
     Dates: start: 20080709, end: 20090911
  3. ICL670A [Suspect]
     Active Substance: DEFERASIROX
     Dosage: 1250 MG, SDAILY
     Route: 048
     Dates: start: 20080601
  4. PRIMOBOLAN-DEPOT [Concomitant]
     Active Substance: METHENOLONE ENANTHATE
     Indication: PRODUCT USED FOR UNKNOWN INDICATION
     Dosage: 20 MG, UNK
     Route: 048
     Dates: start: 20080709, end: 20090911
  5. ICL670A [Suspect]
     Active Substance: DEFERASIROX
     Indication: APLASTIC ANAEMIA
     Dosage: 1250 MG, QD
     Route: 048
     Dates: start: 20080709, end: 20090911
  6. BAKTAR [Concomitant]
     Active Substance: SULFAMETHOXAZOLE\TRIMETHOPRIM
     Indication: PRODUCT USED FOR UNKNOWN INDICATION
     Dosage: 1 DF, UNK
     Route: 048
     Dates: start: 20080709, end: 20090911

REACTIONS (4)
  - Pulmonary alveolar haemorrhage [Fatal]
  - Respiratory disorder [Fatal]
  - Renal impairment [Not Recovered/Not Resolved]
  - Haemoptysis [Fatal]

NARRATIVE: CASE EVENT DATE: 20080806
